FAERS Safety Report 15754976 (Version 2)
Quarter: 2018Q4

REPORT INFORMATION
  Report Type: Spontaneous
  Country: JP (occurrence: JP)
  Receive Date: 20181224
  Receipt Date: 20181231
  Transmission Date: 20190205
  Serious: Yes (Disabling, Other)
  Sender: FDA-Public Use
  Company Number: JP-BAUSCH-BL-2018-035645

PATIENT
  Age: 71 Year
  Sex: Female
  Weight: 42 kg

DRUGS (14)
  1. VISUDYNE [Suspect]
     Active Substance: VERTEPORFIN
     Indication: AGE-RELATED MACULAR DEGENERATION
     Dosage: INTRAVITREAL IN
     Route: 050
     Dates: start: 201805
  2. LUCENTIS [Suspect]
     Active Substance: RANIBIZUMAB
     Indication: AGE-RELATED MACULAR DEGENERATION
     Dosage: INTRAVITREAL IN; 0.05 MG PER ADMINISTRATION
     Route: 050
  3. LUCENTIS [Suspect]
     Active Substance: RANIBIZUMAB
     Dosage: INTRAVITREAL IN; 0.05 MG PER ADMINISTRATION
     Route: 050
     Dates: start: 20180927, end: 2018
  4. EYLEA [Concomitant]
     Active Substance: AFLIBERCEPT
     Indication: PRODUCT USED FOR UNKNOWN INDICATION
     Route: 065
     Dates: start: 201803, end: 2018
  5. EYLEA [Concomitant]
     Active Substance: AFLIBERCEPT
     Route: 065
     Dates: start: 2018, end: 2018
  6. EYLEA [Concomitant]
     Active Substance: AFLIBERCEPT
     Route: 065
     Dates: start: 2018, end: 2018
  7. EYLEA [Concomitant]
     Active Substance: AFLIBERCEPT
     Route: 065
     Dates: start: 2018, end: 2018
  8. LUCENTIS [Suspect]
     Active Substance: RANIBIZUMAB
     Dosage: INTRAVITREAL IN; 0.05 MG PER ADMINISTRATION
     Route: 050
     Dates: start: 20181115
  9. EYLEA [Concomitant]
     Active Substance: AFLIBERCEPT
     Route: 065
     Dates: start: 2018, end: 2018
  10. LUCENTIS [Suspect]
     Active Substance: RANIBIZUMAB
     Dosage: INTRAVITREAL IN; 0.05 MG PER ADMINISTRATION
     Route: 050
     Dates: end: 201803
  11. EYLEA [Concomitant]
     Active Substance: AFLIBERCEPT
     Route: 065
     Dates: start: 2018, end: 2018
  12. EYLEA [Concomitant]
     Active Substance: AFLIBERCEPT
     Route: 065
     Dates: start: 2018
  13. LUCENTIS [Suspect]
     Active Substance: RANIBIZUMAB
     Indication: MACULAR DEGENERATION
     Dosage: INTRAVITREAL IN; 0.05 MG PER ADMINISTRATION
     Route: 050
  14. LUCENTIS [Suspect]
     Active Substance: RANIBIZUMAB
     Dosage: INTRAVITREAL IN; 0.05 MG PER ADMINISTRATION
     Route: 050
     Dates: start: 20180830, end: 2018

REACTIONS (3)
  - Age-related macular degeneration [Recovered/Resolved]
  - Retinal tear [Recovered/Resolved with Sequelae]
  - Retinal pigment epithelial tear [Recovered/Resolved with Sequelae]

NARRATIVE: CASE EVENT DATE: 20181026
